FAERS Safety Report 16108623 (Version 1)
Quarter: 2019Q1

REPORT INFORMATION
  Report Type: Spontaneous
  Country: US (occurrence: US)
  Receive Date: 20190323
  Receipt Date: 20190323
  Transmission Date: 20190418
  Serious: Yes (Hospitalization)
  Sender: FDA-Public Use
  Company Number: US-CPL-000943

PATIENT
  Age: 34 Year
  Sex: Male

DRUGS (4)
  1. AMOXICILLIN. [Concomitant]
     Active Substance: AMOXICILLIN
     Indication: DECUBITUS ULCER
     Dosage: FOR LAST 3 MONTHS
  2. GABAPENTIN. [Concomitant]
     Active Substance: GABAPENTIN
     Indication: DECUBITUS ULCER
     Dosage: FOR LAST 3 MONTHS
  3. METRONIDAZOLE. [Suspect]
     Active Substance: METRONIDAZOLE
     Indication: DECUBITUS ULCER
  4. OXYCODONE/OXYCODONE HYDROCHLORIDE/OXYCODONE PECTINATE/OXYCODONE TEREPHTHALATE [Concomitant]
     Indication: DECUBITUS ULCER
     Dosage: FOR LAST 3 MONTHS

REACTIONS (3)
  - Dysphemia [Recovered/Resolved]
  - Dysarthria [Recovered/Resolved]
  - Aphasia [Recovered/Resolved]
